FAERS Safety Report 4888382-8 (Version None)
Quarter: 2005Q4

REPORT INFORMATION
  Report Type: 
  Country: None (occurrence: None)
  Receive Date: 20051221
  Receipt Date: 20051116
  Transmission Date: 20060501
  Serious: No
  Sender: FDA-Public Use
  Company Number: US-YAMANOUCHI-YPA20050590

PATIENT
  Age: 78 Year
  Sex: Male

DRUGS (3)
  1. VESICARE [Suspect]
     Dosage: 5 MG QD PO
     Route: 048
     Dates: start: 20051101, end: 20051101
  2. VESICARE [Suspect]
     Dosage: 5 MG QD PO
     Route: 048
     Dates: start: 20051101
  3. PREVACID [Concomitant]

REACTIONS (1)
  - CONSTIPATION [None]
